FAERS Safety Report 8112337-3 (Version None)
Quarter: 2012Q1

REPORT INFORMATION
  Report Type: 
  Country: None (occurrence: None)
  Receive Date: 20120203
  Receipt Date: 20111003
  Transmission Date: 20120608
  Serious: No
  Sender: FDA-Public Use
  Company Number: US-ASTRAZENECA-2011SE59290

PATIENT
  Age: 47 Year
  Sex: Female

DRUGS (1)
  1. VANDETANIB [Suspect]
     Route: 048

REACTIONS (2)
  - WEIGHT DECREASED [None]
  - PAIN [None]
